FAERS Safety Report 8815736 (Version 39)
Quarter: 2014Q3

REPORT INFORMATION
  Report Type: Spontaneous
  Country: CA (occurrence: CA)
  Receive Date: 20120928
  Receipt Date: 20140801
  Transmission Date: 20150326
  Serious: Yes (Other)
  Sender: FDA-Public Use
  Company Number: CA-ROCHE-1138411

PATIENT
  Age: 57 Year
  Sex: Female
  Weight: 91.25 kg

DRUGS (29)
  1. XOLAIR [Suspect]
     Active Substance: OMALIZUMAB
     Route: 058
     Dates: start: 20130130
  2. XOLAIR [Suspect]
     Active Substance: OMALIZUMAB
     Route: 058
     Dates: start: 20140116
  3. XOLAIR [Suspect]
     Active Substance: OMALIZUMAB
     Route: 058
     Dates: start: 20140522
  4. SYMBICORT [Concomitant]
     Active Substance: BUDESONIDE\FORMOTEROL FUMARATE DIHYDRATE
  5. PULMICORT TURBUHALER [Concomitant]
     Active Substance: BUDESONIDE
  6. PREDNISONE. [Concomitant]
     Active Substance: PREDNISONE
     Dosage: TAPER WEEKLY BY 5 MG
     Route: 065
  7. VENLAFAXINE [Concomitant]
     Active Substance: VENLAFAXINE HYDROCHLORIDE
  8. XOLAIR [Suspect]
     Active Substance: OMALIZUMAB
     Route: 058
     Dates: start: 20130214
  9. XOLAIR [Suspect]
     Active Substance: OMALIZUMAB
     Route: 058
     Dates: start: 20130228
  10. XOLAIR [Suspect]
     Active Substance: OMALIZUMAB
     Route: 058
     Dates: start: 20130606
  11. XOLAIR [Suspect]
     Active Substance: OMALIZUMAB
     Route: 058
     Dates: start: 20130718
  12. XOLAIR [Suspect]
     Active Substance: OMALIZUMAB
     Route: 058
     Dates: start: 20130912
  13. PREDNISONE. [Concomitant]
     Active Substance: PREDNISONE
     Route: 065
     Dates: start: 201305
  14. XOLAIR [Suspect]
     Active Substance: OMALIZUMAB
     Route: 058
     Dates: start: 20130425
  15. XOLAIR [Suspect]
     Active Substance: OMALIZUMAB
     Route: 058
     Dates: start: 20140102
  16. HERCEPTIN [Concomitant]
     Active Substance: TRASTUZUMAB
  17. TAMOXIFEN [Concomitant]
     Active Substance: TAMOXIFEN
  18. XOLAIR [Suspect]
     Active Substance: OMALIZUMAB
     Indication: ASTHMA
     Route: 058
     Dates: start: 20120727
  19. XOLAIR [Suspect]
     Active Substance: OMALIZUMAB
     Route: 058
     Dates: start: 20130314
  20. XOLAIR [Suspect]
     Active Substance: OMALIZUMAB
     Route: 058
     Dates: start: 20130801
  21. XOLAIR [Suspect]
     Active Substance: OMALIZUMAB
     Route: 058
     Dates: start: 20131024
  22. XOLAIR [Suspect]
     Active Substance: OMALIZUMAB
     Route: 058
     Dates: start: 20140213
  23. PREDNISONE. [Concomitant]
     Active Substance: PREDNISONE
     Dosage: PRESCRIBED FOR 10 DAYS
     Route: 065
  24. XOLAIR [Suspect]
     Active Substance: OMALIZUMAB
     Route: 058
     Dates: start: 20130829
  25. SPIRIVA [Concomitant]
     Active Substance: TIOTROPIUM BROMIDE MONOHYDRATE
  26. VENTOLIN [Concomitant]
     Active Substance: ALBUTEROL SULFATE
  27. ZOPICLONE [Concomitant]
     Active Substance: ZOPICLONE
  28. XOLAIR [Suspect]
     Active Substance: OMALIZUMAB
     Route: 058
     Dates: start: 20130704
  29. ZOPICLONE [Concomitant]
     Active Substance: ZOPICLONE

REACTIONS (30)
  - Pneumonia [Unknown]
  - Lung infection [Not Recovered/Not Resolved]
  - Oropharyngeal pain [Unknown]
  - Memory impairment [Unknown]
  - Breath sounds abnormal [Unknown]
  - Ear pain [Unknown]
  - Frustration [Unknown]
  - Erythema [Unknown]
  - Viral infection [Unknown]
  - Fall [Unknown]
  - Drug ineffective [Unknown]
  - Obstructive airways disorder [Not Recovered/Not Resolved]
  - Wheezing [Unknown]
  - Chest discomfort [Unknown]
  - Migraine [Unknown]
  - Influenza [Unknown]
  - Dyspnoea [Unknown]
  - Fatigue [Unknown]
  - Infection [Unknown]
  - Malaise [Recovering/Resolving]
  - Weight increased [Unknown]
  - Contusion [Unknown]
  - Sinusitis [Unknown]
  - Productive cough [Unknown]
  - Immune system disorder [Unknown]
  - Musculoskeletal pain [Unknown]
  - Neoplasm malignant [Unknown]
  - Blood pressure [Unknown]
  - Upper respiratory tract infection [Not Recovered/Not Resolved]
  - Feeling abnormal [Unknown]

NARRATIVE: CASE EVENT DATE: 201209
